FAERS Safety Report 6428244-8 (Version None)
Quarter: 2009Q4

REPORT INFORMATION
  Report Type: 
  Country: None (occurrence: None)
  Receive Date: 20091104
  Receipt Date: 20091104
  Transmission Date: 20100525
  Serious: Yes (Hospitalization)
  Sender: FDA-Public Use
  Company Number: None

PATIENT
  Age: 89 Year

DRUGS (1)
  1. PHENYTOIN [Suspect]
     Indication: CONVULSION
     Dosage: 300 MG EVERY DAY PO
     Route: 048
     Dates: start: 20090605, end: 20090707

REACTIONS (3)
  - HYPOTENSION [None]
  - PYREXIA [None]
  - RASH [None]
